FAERS Safety Report 5991576-1 (Version None)
Quarter: 2008Q4

REPORT INFORMATION
  Report Type: 
  Country: None (occurrence: None)
  Receive Date: 20081211
  Receipt Date: 20080501
  Transmission Date: 20090506
  Serious: No
  Sender: FDA-Public Use
  Company Number: US-AMGEN-KDL273030

PATIENT
  Sex: Female

DRUGS (12)
  1. ENBREL [Suspect]
     Indication: RHEUMATOID ARTHRITIS
     Route: 058
     Dates: start: 20071217
  2. METHOTREXATE [Concomitant]
     Dates: start: 20070101
  3. SYNTHROID [Concomitant]
  4. TIAZAC [Concomitant]
  5. SURFAK [Concomitant]
  6. MIACALCIN [Concomitant]
  7. NITROGLYCERIN [Concomitant]
  8. ZANTAC [Concomitant]
  9. SALAGEN [Concomitant]
  10. VITAMIN D [Concomitant]
  11. NEXIUM [Concomitant]
  12. UNKNOWN [Concomitant]

REACTIONS (4)
  - CATARACT [None]
  - EYE INFLAMMATION [None]
  - INJECTION SITE PAIN [None]
  - VISUAL ACUITY REDUCED [None]
